FAERS Safety Report 17985940 (Version 4)
Quarter: 2020Q3

REPORT INFORMATION
  Report Type: Report from Study
  Country: CA (occurrence: CA)
  Receive Date: 20200706
  Receipt Date: 20200811
  Transmission Date: 20201103
  Serious: Yes (Hospitalization)
  Sender: FDA-Public Use
  Company Number: CA-ACTELION-A-NJ2019-198515

PATIENT
  Sex: Male
  Weight: 100.68 kg

DRUGS (16)
  1. UPTRAVI [Suspect]
     Active Substance: SELEXIPAG
     Dosage: 1600 MCG, BID
     Route: 048
     Dates: start: 20180801
  2. OPSUMIT [Suspect]
     Active Substance: MACITENTAN
     Indication: PULMONARY ARTERIAL HYPERTENSION
     Dosage: 10 MG, QD
     Route: 048
     Dates: start: 20151125
  3. OXYGEN. [Concomitant]
     Active Substance: OXYGEN
  4. SEEBRI [Concomitant]
     Active Substance: GLYCOPYRROLATE
  5. APO?ALLOPURINOL [Concomitant]
     Active Substance: ALLOPURINOL
  6. LANSOPRAZOLE. [Concomitant]
     Active Substance: LANSOPRAZOLE
     Dosage: 30 MG
  7. ZOPICLONE [Concomitant]
     Active Substance: ZOPICLONE
     Dosage: UNK, PRN
  8. OTRIVIN [Concomitant]
     Active Substance: XYLOMETAZOLINE
     Dosage: UNK SPRAY, PRN
  9. ONBREZ [Concomitant]
     Active Substance: INDACATEROL
     Dosage: UNK, PRN
     Route: 055
  10. ADALAT CC [Concomitant]
     Active Substance: NIFEDIPINE
     Dosage: 30 MG
  11. UPTRAVI [Suspect]
     Active Substance: SELEXIPAG
     Indication: PULMONARY ARTERIAL HYPERTENSION
     Dosage: 200 MCG, BID
     Route: 048
     Dates: start: 20200706
  12. ADCIRCA [Concomitant]
     Active Substance: TADALAFIL
     Indication: PULMONARY ARTERIAL HYPERTENSION
  13. SYNTHROID [Concomitant]
     Active Substance: LEVOTHYROXINE SODIUM
  14. ROSUVASTATIN. [Concomitant]
     Active Substance: ROSUVASTATIN
  15. ASAPHEN [Concomitant]
     Active Substance: ASPIRIN
  16. EURO?K20 [Concomitant]

REACTIONS (7)
  - Dyspnoea [Not Recovered/Not Resolved]
  - General physical health deterioration [Not Recovered/Not Resolved]
  - Hospice care [Unknown]
  - Fluid retention [Not Recovered/Not Resolved]
  - Oxygen therapy [Unknown]
  - Renal disorder [Unknown]
  - Hospitalisation [Not Recovered/Not Resolved]
